FAERS Safety Report 12080429 (Version 4)
Quarter: 2016Q2

REPORT INFORMATION
  Report Type: Spontaneous
  Country: JP (occurrence: JP)
  Receive Date: 20160216
  Receipt Date: 20160408
  Transmission Date: 20160815
  Serious: Yes (Hospitalization)
  Sender: FDA-Public Use
  Company Number: JP-GE HEALTHCARE MEDICAL DIAGNOSTICS-OMPQ-PR-1602S-0172

PATIENT
  Age: 84 Year
  Sex: Male
  Weight: 47 kg

DRUGS (11)
  1. FRANDOL [Concomitant]
     Active Substance: ISOSORBIDE DINITRATE
  2. BAYASPIRIN [Concomitant]
     Active Substance: ASPIRIN
  3. DIART [Concomitant]
     Active Substance: AZOSEMIDE
  4. TANATRIL [Concomitant]
     Active Substance: IMIDAPRIL
  5. ARTIST [Concomitant]
     Active Substance: CARVEDILOL
  6. LANSOPRAZOLE. [Concomitant]
     Active Substance: LANSOPRAZOLE
  7. PLAVIX [Concomitant]
     Active Substance: CLOPIDOGREL BISULFATE
  8. ALDACTONE A [Concomitant]
     Active Substance: SPIRONOLACTONE
  9. OMNIPAQUE [Suspect]
     Active Substance: IOHEXOL
     Indication: PRODUCT USED FOR UNKNOWN INDICATION
     Route: 042
     Dates: start: 20160129, end: 20160129
  10. OMNIPAQUE [Suspect]
     Active Substance: IOHEXOL
     Indication: DIAGNOSTIC PROCEDURE
  11. LIVALO [Concomitant]
     Active Substance: PITAVASTATIN CALCIUM

REACTIONS (1)
  - Anaphylactic shock [Recovered/Resolved]

NARRATIVE: CASE EVENT DATE: 20160129
